FAERS Safety Report 9133424 (Version 1)
Quarter: 2013Q1

REPORT INFORMATION
  Report Type: Report from Study
  Country: US (occurrence: US)
  Receive Date: 20130129
  Receipt Date: 20130129
  Transmission Date: 20140127
  Serious: No
  Sender: FDA-Public Use
  Company Number: US-ABBOTT-12P-163-0933547-00

PATIENT
  Age: 24 None
  Sex: Female
  Weight: 108.96 kg

DRUGS (11)
  1. HUMIRA 40 MG/ 0.8 ML PRE-FILLED SYRINGE [Suspect]
     Indication: RHEUMATOID ARTHRITIS
     Route: 058
     Dates: start: 20120403, end: 20120417
  2. HUMIRA 40 MG/0.8 ML PEN [Suspect]
     Indication: RHEUMATOID ARTHRITIS
     Route: 058
     Dates: start: 20120501
  3. ALBUTEROL NEBULIZER [Concomitant]
     Indication: ASTHMA
  4. ALBUTEROL NEBULIZER [Concomitant]
     Indication: RESPIRATORY TRACT INFLAMMATION
  5. VENTOLIN [Concomitant]
     Indication: ASTHMA
  6. VENTOLIN [Concomitant]
     Indication: RESPIRATORY TRACT INFLAMMATION
  7. QVAR [Concomitant]
     Indication: ASTHMA
  8. PREDNISONE [Concomitant]
     Indication: PRODUCT USED FOR UNKNOWN INDICATION
  9. MELOXICAM [Concomitant]
     Indication: PRODUCT USED FOR UNKNOWN INDICATION
  10. ARAVA [Concomitant]
     Indication: RHEUMATOID ARTHRITIS
  11. TRAMADOL [Concomitant]
     Indication: RHEUMATOID ARTHRITIS

REACTIONS (5)
  - Injection site erythema [Not Recovered/Not Resolved]
  - Injection site pruritus [Recovered/Resolved]
  - Injection site pain [Recovered/Resolved]
  - Injection site bruising [Not Recovered/Not Resolved]
  - Dyspnoea [Recovered/Resolved]
